FAERS Safety Report 6731097-1 (Version None)
Quarter: 2010Q2

REPORT INFORMATION
  Report Type: 
  Country: None (occurrence: None)
  Receive Date: 20100518
  Receipt Date: 20100511
  Transmission Date: 20101027
  Serious: Yes (Death)
  Sender: FDA-Public Use
  Company Number: US-ELI_LILLY_AND_COMPANY-US201005002735

PATIENT
  Age: 48 Year
  Sex: Male

DRUGS (1)
  1. ALIMTA [Suspect]
     Indication: BRONCHIOLOALVEOLAR CARCINOMA
     Dosage: 500 MG/M2, UNK
     Route: 042
     Dates: start: 20091001, end: 20100201

REACTIONS (2)
  - MALIGNANT NEOPLASM PROGRESSION [None]
  - RENAL FAILURE [None]
